FAERS Safety Report 24329513 (Version 2)
Quarter: 2024Q4

REPORT INFORMATION
  Report Type: Spontaneous
  Country: JP (occurrence: JP)
  Receive Date: 20240917
  Receipt Date: 20241011
  Transmission Date: 20250115
  Serious: Yes (Other)
  Sender: MERCK
  Company Number: JP-MSD-M2024-30178

PATIENT
  Age: 8 Decade
  Sex: Male

DRUGS (3)
  1. KEYTRUDA [Suspect]
     Active Substance: PEMBROLIZUMAB
     Indication: Non-small cell lung cancer stage III
     Dosage: 200 MILLIGRAM, Q3W
     Route: 041
     Dates: start: 202407, end: 202407
  2. KEYTRUDA [Suspect]
     Active Substance: PEMBROLIZUMAB
     Indication: PD-L1 positive cancer
  3. ANAMORELIN HYDROCHLORIDE [Concomitant]
     Active Substance: ANAMORELIN HYDROCHLORIDE
     Indication: Cachexia
     Dosage: UNK
     Route: 065

REACTIONS (5)
  - Malignant neoplasm progression [Unknown]
  - Renal impairment [Not Recovered/Not Resolved]
  - Decreased appetite [Not Recovered/Not Resolved]
  - Drug eruption [Recovered/Resolved]
  - Dehydration [Unknown]

NARRATIVE: CASE EVENT DATE: 20240101
